FAERS Safety Report 18078341 (Version 1)
Quarter: 2020Q3

REPORT INFORMATION
  Report Type: Spontaneous
  Country: US (occurrence: US)
  Receive Date: 20200727
  Receipt Date: 20200727
  Transmission Date: 20201103
  Serious: Yes (Other)
  Sender: FDA-Public Use
  Company Number: None

PATIENT
  Age: 34 Year
  Sex: Female
  Weight: 112.94 kg

DRUGS (2)
  1. LEVOTHYROXINE. [Concomitant]
     Active Substance: LEVOTHYROXINE
     Indication: HYPOTHYROIDISM
     Dosage: ?          QUANTITY:137 MG MILLIGRAM(S);OTHER FREQUENCY:3PER WK TUE,THUR,S;?
     Route: 048
  2. LEVOTHYROXINE. [Suspect]
     Active Substance: LEVOTHYROXINE
     Indication: HYPOTHYROIDISM
     Dosage: QUANTITY:125 MG MILLIGRAM(S);OTHER FREQUENCY:4 PER WEEK ;OTHER ROUTE:ORAL, MON,WED,FRI,SAT?

REACTIONS (6)
  - Drug hypersensitivity [None]
  - Drug intolerance [None]
  - Product formulation issue [None]
  - Rash [None]
  - Drug level abnormal [None]
  - Vomiting [None]
